FAERS Safety Report 26107857 (Version 1)
Quarter: 2025Q4

REPORT INFORMATION
  Report Type: Report from Study
  Country: US (occurrence: US)
  Receive Date: 20251201
  Receipt Date: 20251201
  Transmission Date: 20260117
  Serious: Yes (Hospitalization, Other)
  Sender: ALEXION PHARMACEUTICALS
  Company Number: US-AstraZeneca-CH-00976942A

PATIENT
  Age: 11 Year
  Sex: Male
  Weight: 34.3 kg

DRUGS (4)
  1. SELUMETINIB [Suspect]
     Active Substance: SELUMETINIB
     Indication: Neurofibromatosis
     Dosage: UNK
  2. SELUMETINIB [Suspect]
     Active Substance: SELUMETINIB
     Dosage: 10 MILLIGRAM, QHS
     Dates: start: 20250507
  3. SELUMETINIB [Suspect]
     Active Substance: SELUMETINIB
     Dosage: 25 MILLIGRAM, EVERY MORNING
     Dates: start: 20250507
  4. SELUMETINIB [Suspect]
     Active Substance: SELUMETINIB
     Dosage: 35 MILLIGRAM, BID
     Dates: start: 20251001, end: 20251008

REACTIONS (15)
  - Myositis [Unknown]
  - Influenza [Unknown]
  - Arthritis bacterial [Unknown]
  - Neutropenia [Recovered/Resolved]
  - Thrombocytopenia [Recovered/Resolved]
  - Cellulitis [Recovered/Resolved]
  - Pyrexia [Unknown]
  - Dermatitis contact [Unknown]
  - Lymphodepletion [Unknown]
  - Anaemia [Recovered/Resolved]
  - Decreased appetite [Recovered/Resolved]
  - Weight decreased [Recovered/Resolved]
  - Nausea [Recovered/Resolved]
  - Rash erythematous [Unknown]
  - Swelling [Unknown]

NARRATIVE: CASE EVENT DATE: 20251001
